FAERS Safety Report 9356601 (Version 1)
Quarter: 2013Q2

REPORT INFORMATION
  Report Type: Other
  Country: IT (occurrence: IT)
  Receive Date: 20130619
  Receipt Date: 20130619
  Transmission Date: 20140414
  Serious: Yes (Hospitalization)
  Sender: FDA-Public Use
  Company Number: IT-ACTAVIS-2013-10165

PATIENT
  Age: 25 Year
  Sex: Female

DRUGS (2)
  1. LANSOPRAZOLE (UNKNOWN) [Suspect]
     Indication: PRODUCT USED FOR UNKNOWN INDICATION
     Dosage: 90 MG, SINGLE
     Route: 048
  2. IBUPROFEN (UNKNOWN) [Suspect]
     Indication: PRODUCT USED FOR UNKNOWN INDICATION
     Dosage: 6000 MG, SINGLE
     Route: 048
     Dates: start: 20130511

REACTIONS (3)
  - Toxicity to various agents [Recovering/Resolving]
  - Intentional drug misuse [Recovering/Resolving]
  - Overdose [Recovering/Resolving]
